FAERS Safety Report 5959410-3 (Version None)
Quarter: 2008Q4

REPORT INFORMATION
  Report Type: 
  Country: None (occurrence: None)
  Receive Date: 20081120
  Receipt Date: 20080903
  Transmission Date: 20090506
  Serious: No
  Sender: FDA-Public Use
  Company Number: A0746393A

PATIENT
  Age: 55 Year
  Sex: Female

DRUGS (2)
  1. VERAMYST [Suspect]
     Dosage: 2SPR PER DAY
     Route: 045
     Dates: start: 20070801, end: 20080601
  2. VITAMINS [Concomitant]

REACTIONS (1)
  - EPISTAXIS [None]
